FAERS Safety Report 25348137 (Version 1)
Quarter: 2025Q2

REPORT INFORMATION
  Report Type: Spontaneous
  Country: JP (occurrence: JP)
  Receive Date: 20250522
  Receipt Date: 20250522
  Transmission Date: 20250717
  Serious: Yes (Other)
  Sender: ALEXION PHARMACEUTICALS
  Company Number: JP-ASTRAZENECA-250046980_013120_P_1

PATIENT
  Age: 55 Year

DRUGS (1)
  1. DURVALUMAB [Suspect]
     Active Substance: DURVALUMAB
     Indication: Endometrial cancer
     Dosage: 1120 MILLIGRAM, Q3W

REACTIONS (3)
  - Myelosuppression [Unknown]
  - Rash [Unknown]
  - Conjunctival haemorrhage [Unknown]
